FAERS Safety Report 6349637-3 (Version None)
Quarter: 2009Q3

REPORT INFORMATION
  Report Type: 
  Country: None (occurrence: None)
  Receive Date: 20090911
  Receipt Date: 20090831
  Transmission Date: 20100115
  Serious: No
  Sender: FDA-Public Use
  Company Number: US-ELI_LILLY_AND_COMPANY-US200909000060

PATIENT
  Sex: Male

DRUGS (2)
  1. CIALIS [Suspect]
     Indication: ERECTILE DYSFUNCTION
     Dosage: 2.5 MG, UNKNOWN
     Route: 065
  2. CIALIS [Suspect]
     Dosage: 1.25 MG, UNKNOWN
     Route: 065
     Dates: start: 20090829

REACTIONS (2)
  - VISUAL FIELD DEFECT [None]
  - WRONG TECHNIQUE IN DRUG USAGE PROCESS [None]
